FAERS Safety Report 20485512 (Version 1)
Quarter: 2022Q1

REPORT INFORMATION
  Report Type: Spontaneous
  Country: US (occurrence: None)
  Receive Date: 20220217
  Receipt Date: 20220217
  Transmission Date: 20220423
  Serious: No
  Sender: FDA-Public Use
  Company Number: None

PATIENT
  Sex: Female

DRUGS (19)
  1. IMATINIB [Suspect]
     Active Substance: IMATINIB
     Indication: Chronic myeloid leukaemia
     Dosage: 400 MG DAILY ORAL?
     Route: 048
  2. ALBUTEROL/ ipratropium [Concomitant]
  3. ALENDRONATE [Concomitant]
     Active Substance: ALENDRONATE SODIUM
  4. ASCORBIC ACID [Concomitant]
     Active Substance: ASCORBIC ACID
  5. BREO ELLIPTA [Concomitant]
     Active Substance: FLUTICASONE FUROATE\VILANTEROL TRIFENATATE
  6. CALMOSEPTINE [Concomitant]
     Active Substance: MENTHOL\ZINC OXIDE
  7. CHOLECALCIFEROL [Concomitant]
     Active Substance: CHOLECALCIFEROL
  8. CITALOPRAM [Concomitant]
     Active Substance: CITALOPRAM HYDROBROMIDE
  9. DILTIZEM [Concomitant]
  10. ELIQUIS [Concomitant]
     Active Substance: APIXABAN
  11. EPIPEN [Concomitant]
     Active Substance: EPINEPHRINE
  12. ALLEGRA [Concomitant]
     Active Substance: FEXOFENADINE HYDROCHLORIDE
  13. LEVSIN [Concomitant]
     Active Substance: HYOSCYAMINE SULFATE
  14. LORATADINE [Concomitant]
     Active Substance: LORATADINE
  15. OMEPRAZOLE [Concomitant]
     Active Substance: OMEPRAZOLE
  16. REGLAN [Concomitant]
     Active Substance: METOCLOPRAMIDE HYDROCHLORIDE
  17. VENTOLIN HFA [Concomitant]
     Active Substance: ALBUTEROL SULFATE
  18. VITAMIN B12 [Concomitant]
     Active Substance: CYANOCOBALAMIN
  19. VITAMIN D3 [Concomitant]
     Active Substance: CHOLECALCIFEROL

REACTIONS (4)
  - Gastroenteritis viral [None]
  - Vomiting [None]
  - COVID-19 [None]
  - Bronchitis [None]
